FAERS Safety Report 18061544 (Version 1)
Quarter: 2020Q3

REPORT INFORMATION
  Report Type: Spontaneous
  Country: US (occurrence: US)
  Receive Date: 20200723
  Receipt Date: 20200723
  Transmission Date: 20201103
  Serious: No
  Sender: FDA-Public Use
  Company Number: US-009507513-2006USA009681

PATIENT
  Age: 66 Year
  Sex: Male

DRUGS (8)
  1. ASMANEX [Suspect]
     Active Substance: MOMETASONE FUROATE
     Dosage: (START DATE: BETWEEN 2005AND 2010)
     Route: 055
  2. ASMANEX [Suspect]
     Active Substance: MOMETASONE FUROATE
     Dosage: 1 PUFF DAILY (UNIT 2)
     Route: 055
     Dates: start: 202005
  3. PRILOSEC [Concomitant]
     Active Substance: OMEPRAZOLE MAGNESIUM
  4. ZOLOFT [Concomitant]
     Active Substance: SERTRALINE HYDROCHLORIDE
  5. SYNTHROID [Concomitant]
     Active Substance: LEVOTHYROXINE SODIUM
  6. SINGULAIR [Concomitant]
     Active Substance: MONTELUKAST SODIUM
  7. ASMANEX [Suspect]
     Active Substance: MOMETASONE FUROATE
     Indication: ASTHMA
     Dosage: 1 PUFF DAILY (UNIT 3)
     Route: 055
     Dates: start: 202003, end: 202003
  8. ASMANEX [Suspect]
     Active Substance: MOMETASONE FUROATE
     Indication: ASTHMA
     Dosage: 1 DAILY PUFF, QD (UNIT 1)
     Route: 055
     Dates: start: 202006

REACTIONS (3)
  - Asthma [Recovering/Resolving]
  - Device malfunction [Unknown]
  - Poor quality device used [Unknown]

NARRATIVE: CASE EVENT DATE: 202003
